FAERS Safety Report 6411622-0 (Version None)
Quarter: 2009Q4

REPORT INFORMATION
  Report Type: 
  Country: None (occurrence: None)
  Receive Date: 20091020
  Receipt Date: 20091006
  Transmission Date: 20100525
  Serious: Yes (Other)
  Sender: FDA-Public Use
  Company Number: 09-001574

PATIENT
  Age: 17 Year
  Sex: Male

DRUGS (1)
  1. DORYX [Suspect]
     Indication: ACNE
     Dosage: 150 MG, QD, ORAL
     Route: 048
     Dates: start: 20090916, end: 20090926

REACTIONS (2)
  - THROAT TIGHTNESS [None]
  - URTICARIA [None]
